FAERS Safety Report 9683516 (Version 1)
Quarter: 2013Q4

REPORT INFORMATION
  Report Type: Spontaneous
  Country: GB (occurrence: GB)
  Receive Date: 20131112
  Receipt Date: 20131112
  Transmission Date: 20140711
  Serious: Yes (Other)
  Sender: FDA-Public Use
  Company Number: GB-SA-2013SA114046

PATIENT
  Sex: 0

DRUGS (1)
  1. ALEMTUZUMAB [Suspect]
     Indication: MULTIPLE SCLEROSIS
     Route: 065
     Dates: start: 200904, end: 2011

REACTIONS (5)
  - Hyperthyroidism [Unknown]
  - Off label use [Unknown]
  - Herpes zoster [Unknown]
  - Arthritis [Unknown]
  - Psoriasis [Unknown]
